FAERS Safety Report 5155161-6 (Version None)
Quarter: 2006Q4

REPORT INFORMATION
  Report Type: 
  Country: None (occurrence: None)
  Receive Date: 20061121
  Receipt Date: 20061115
  Transmission Date: 20070319
  Serious: Yes (Hospitalization)
  Sender: FDA-Public Use
  Company Number: 2006UW24381

PATIENT
  Age: 63 Year
  Sex: Female
  Weight: 99.8 kg

DRUGS (9)
  1. CRESTOR [Suspect]
     Indication: BLOOD CHOLESTEROL INCREASED
     Route: 048
  2. TOPROL-XL [Concomitant]
     Route: 048
  3. CLARITIN [Concomitant]
  4. PROCARDIA [Concomitant]
  5. VALIUM [Concomitant]
  6. VICODIN [Concomitant]
  7. PREVACID [Concomitant]
  8. FIORICET [Concomitant]
  9. NEURONTIN [Concomitant]

REACTIONS (3)
  - ABDOMINAL DISCOMFORT [None]
  - DRUG INEFFECTIVE [None]
  - HAEMORRHAGE [None]
